FAERS Safety Report 10622981 (Version 1)
Quarter: 2014Q4

REPORT INFORMATION
  Report Type: Spontaneous
  Country: IT (occurrence: IT)
  Receive Date: 20141203
  Receipt Date: 20141203
  Transmission Date: 20150529
  Serious: Yes (Hospitalization)
  Sender: FDA-Public Use
  Company Number: IT-BAYER-2014-175985

PATIENT
  Age: 92 Year
  Sex: Female

DRUGS (8)
  1. VENITRIN [Concomitant]
     Active Substance: NITROGLYCERIN
  2. CARDIOASPIRIN [Suspect]
     Active Substance: ASPIRIN
     Dosage: UNK
  3. DILATREND [Suspect]
     Active Substance: CARVEDILOL
     Dosage: DAILY DOSE 12.5 MG
     Route: 048
     Dates: start: 20140601, end: 20141122
  4. ALLOPURINOL. [Concomitant]
     Active Substance: ALLOPURINOL
  5. COLECALCIFEROL [Concomitant]
     Active Substance: CHOLECALCIFEROL
  6. CARDIOASPIRIN [Suspect]
     Active Substance: ASPIRIN
     Dosage: DAILY DOSE 100 MG
     Route: 048
     Dates: start: 20140601, end: 20141122
  7. LASIX [Concomitant]
     Active Substance: FUROSEMIDE
  8. OMEPRAZOLE. [Concomitant]
     Active Substance: OMEPRAZOLE

REACTIONS (5)
  - Atrioventricular block first degree [Recovering/Resolving]
  - Fall [Recovering/Resolving]
  - Cerebral haematoma [Recovering/Resolving]
  - Syncope [Recovering/Resolving]
  - Sinus bradycardia [Recovering/Resolving]

NARRATIVE: CASE EVENT DATE: 20141122
